FAERS Safety Report 9246745 (Version 1)
Quarter: 2013Q2

REPORT INFORMATION
  Report Type: Report from Study
  Country: US (occurrence: US)
  Receive Date: 20130422
  Receipt Date: 20130422
  Transmission Date: 20140414
  Serious: No
  Sender: FDA-Public Use
  Company Number: US-ABBOTT-12P-163-0972810-00

PATIENT
  Age: 16 Year
  Sex: Male

DRUGS (1)
  1. LUPRON DEPOT-PED 11.25 MG [Suspect]
     Indication: TRANSGENDER HORMONAL THERAPY
     Dates: start: 20120216

REACTIONS (3)
  - Off label use [Unknown]
  - Transgender hormonal therapy [Unknown]
  - Hyperhidrosis [Not Recovered/Not Resolved]
